FAERS Safety Report 6668062-9 (Version None)
Quarter: 2010Q2

REPORT INFORMATION
  Report Type: 
  Country: None (occurrence: None)
  Receive Date: 20100405
  Receipt Date: 20100323
  Transmission Date: 20101027
  Serious: Yes (Hospitalization)
  Sender: FDA-Public Use
  Company Number: FR-AMGEN-US376558

PATIENT
  Sex: Female

DRUGS (3)
  1. ENBREL [Suspect]
     Indication: RHEUMATOID ARTHRITIS
     Route: 058
     Dates: start: 20091022
  2. CORTICOSTEROID NOS [Concomitant]
     Dosage: UNKNOWN
     Route: 065
     Dates: end: 20091201
  3. CORTICOSTEROID NOS [Concomitant]
     Dosage: UNKNOWN (HIGHER DOSE)
     Dates: start: 20091201

REACTIONS (10)
  - COLITIS [None]
  - CONDITION AGGRAVATED [None]
  - GASTROENTERITIS [None]
  - INJECTION SITE ERYTHEMA [None]
  - INJECTION SITE PRURITUS [None]
  - INJECTION SITE URTICARIA [None]
  - RASH PAPULAR [None]
  - RASH PRURITIC [None]
  - RHEUMATOID ARTHRITIS [None]
  - SINUSITIS [None]
